FAERS Safety Report 8541409-4 (Version None)
Quarter: 2012Q2

REPORT INFORMATION
  Report Type: 
  Country: None (occurrence: None)
  Receive Date: 20120416
  Receipt Date: 20120702
  Transmission Date: 20120825
  Serious: Yes (Other)
  Sender: FDA-Public Use
  Company Number: JP-2012-15748

PATIENT
  Age: 17 Year
  Sex: Male

DRUGS (1)
  1. PLETAL [Suspect]
     Dosage: UNK, ORAL
     Route: 048

REACTIONS (2)
  - ANEURYSM [None]
  - DISEASE PROGRESSION [None]
